FAERS Safety Report 15276310 (Version 1)
Quarter: 2018Q3

REPORT INFORMATION
  Report Type: Spontaneous
  Country: US (occurrence: US)
  Receive Date: 20180728
  Receipt Date: 20180728
  Transmission Date: 20181010
  Serious: Yes (Life-Threatening, Hospitalization, Other)
  Sender: FDA-Public Use
  Company Number: None

PATIENT
  Age: 45 Month
  Sex: Female
  Weight: 67.5 kg

DRUGS (3)
  1. SOLU?CORTEF [Concomitant]
     Active Substance: HYDROCORTISONE SODIUM SUCCINATE
  2. CORTEF [Concomitant]
     Active Substance: HYDROCORTISONE
  3. HYDROCORTISONE. [Suspect]
     Active Substance: HYDROCORTISONE
     Indication: ADDISON^S DISEASE
     Dosage: ?          QUANTITY:1 TABLET(S);?
     Route: 048
     Dates: start: 20171023, end: 20180728

REACTIONS (9)
  - Abdominal discomfort [None]
  - Pruritus [None]
  - Fatigue [None]
  - Adrenocortical insufficiency acute [None]
  - Condition aggravated [None]
  - Tachycardia [None]
  - Product substitution issue [None]
  - Loss of personal independence in daily activities [None]
  - Blood pressure abnormal [None]

NARRATIVE: CASE EVENT DATE: 20180717
